FAERS Safety Report 13819847 (Version 4)
Quarter: 2017Q3

REPORT INFORMATION
  Report Type: Spontaneous
  Country: GB (occurrence: GB)
  Receive Date: 20170731
  Receipt Date: 20170912
  Transmission Date: 20171127
  Serious: Yes (Hospitalization, Other)
  Sender: FDA-Public Use
  Company Number: GB-MYLANLABS-2017M1047322

PATIENT
  Age: 55 Year
  Sex: Male

DRUGS (3)
  1. CLOZARIL [Suspect]
     Active Substance: CLOZAPINE
     Indication: SCHIZOPHRENIA
     Dosage: UNK
     Route: 048
     Dates: start: 19951103
  2. CLOZARIL [Suspect]
     Active Substance: CLOZAPINE
     Dosage: UNK
     Route: 048
     Dates: start: 20170906
  3. CLOZARIL [Suspect]
     Active Substance: CLOZAPINE
     Dosage: 300 MG, QD
     Route: 048
     Dates: start: 20170725, end: 20170725

REACTIONS (8)
  - Mean cell volume increased [Unknown]
  - Lymphocyte percentage increased [Unknown]
  - Mental impairment [Unknown]
  - Agranulocytosis [Recovered/Resolved]
  - Red blood cell count decreased [Unknown]
  - Monocyte count increased [Unknown]
  - Haemoglobin decreased [Recovered/Resolved]
  - Mean cell haemoglobin concentration decreased [Unknown]

NARRATIVE: CASE EVENT DATE: 2017
